FAERS Safety Report 13627372 (Version 1)
Quarter: 2017Q2

REPORT INFORMATION
  Report Type: Spontaneous
  Country: DE (occurrence: DE)
  Receive Date: 20170608
  Receipt Date: 20170608
  Transmission Date: 20170830
  Serious: Yes (Hospitalization, Other)
  Sender: FDA-Public Use
  Company Number: DE-PFIZER INC-2017240835

PATIENT
  Age: 47 Year
  Sex: Female
  Weight: 53 kg

DRUGS (4)
  1. KLACID [Suspect]
     Active Substance: CLARITHROMYCIN
     Indication: PNEUMONIA
     Dosage: UNK
     Route: 048
     Dates: start: 20141028
  2. UNACID PD [Suspect]
     Active Substance: SULTAMICILLIN TOSYLATE
     Indication: PNEUMONIA
     Dosage: UNK
     Route: 048
     Dates: start: 20141031
  3. CEFUROXIM [Concomitant]
     Active Substance: CEFUROXIME
     Indication: PNEUMONIA MYCOPLASMAL
     Dosage: 1 DF, 2X/DAY
     Dates: start: 20141027, end: 20141028
  4. UNACID [Suspect]
     Active Substance: AMPICILLIN SODIUM\SULBACTAM SODIUM
     Indication: PNEUMONIA
     Dosage: UNK
     Route: 042
     Dates: start: 20141028, end: 20141031

REACTIONS (2)
  - Delirium [Recovered/Resolved]
  - Psychotic disorder [Recovered/Resolved]

NARRATIVE: CASE EVENT DATE: 201410
